FAERS Safety Report 12632008 (Version 2)
Quarter: 2016Q3

REPORT INFORMATION
  Report Type: Spontaneous
  Country: US (occurrence: US)
  Receive Date: 20160808
  Receipt Date: 20160808
  Transmission Date: 20161109
  Serious: No
  Sender: FDA-Public Use
  Company Number: US-BEH-2016061654

PATIENT
  Sex: Female
  Weight: 64 kg

DRUGS (26)
  1. ACETAMINOPHEN. [Concomitant]
     Active Substance: ACETAMINOPHEN
  2. BYSTOLIC [Concomitant]
     Active Substance: NEBIVOLOL HYDROCHLORIDE
  3. HYDROCORTISONE ALOE [Concomitant]
  4. SUMATRIPTAN SUCCINATE. [Concomitant]
     Active Substance: SUMATRIPTAN SUCCINATE
  5. NORCO [Concomitant]
     Active Substance: ACETAMINOPHEN\HYDROCODONE BITARTRATE
  6. LYRICA [Concomitant]
     Active Substance: PREGABALIN
  7. AMITRIPTYLINE [Concomitant]
     Active Substance: AMITRIPTYLINE
  8. BRIMONIDINE TARTRATE. [Concomitant]
     Active Substance: BRIMONIDINE TARTRATE
  9. DIPHENHYDRAMINE. [Concomitant]
     Active Substance: DIPHENHYDRAMINE
  10. TRIAMCINOLONE ACETONIDE. [Concomitant]
     Active Substance: TRIAMCINOLONE ACETONIDE
  11. IBUPROFEN. [Concomitant]
     Active Substance: IBUPROFEN
  12. HIZENTRA [Suspect]
     Active Substance: HUMAN IMMUNOGLOBULIN G
     Indication: IMMUNODEFICIENCY COMMON VARIABLE
     Route: 058
  13. CLONIDINE. [Concomitant]
     Active Substance: CLONIDINE
  14. HIZENTRA [Suspect]
     Active Substance: HUMAN IMMUNOGLOBULIN G
     Indication: HYPOGAMMAGLOBULINAEMIA
     Route: 058
  15. COLCRYS [Concomitant]
     Active Substance: COLCHICINE
  16. CYPROHEPTADINE. [Concomitant]
     Active Substance: CYPROHEPTADINE
  17. IPRATROPIUM BROMIDE. [Concomitant]
     Active Substance: IPRATROPIUM BROMIDE
  18. MUCINEX [Concomitant]
     Active Substance: GUAIFENESIN
  19. BUDESONIDE. [Concomitant]
     Active Substance: BUDESONIDE
  20. ADVAIR HFA [Concomitant]
     Active Substance: FLUTICASONE PROPIONATE\SALMETEROL XINAFOATE
  21. THEOCHRON [Concomitant]
     Active Substance: THEOPHYLLINE ANHYDROUS
  22. HYOSCYAMINE. [Concomitant]
     Active Substance: HYOSCYAMINE
  23. LIDOCAINE. [Concomitant]
     Active Substance: LIDOCAINE
  24. EPIPEN [Concomitant]
     Active Substance: EPINEPHRINE
  25. NYSTATIN. [Concomitant]
     Active Substance: NYSTATIN
  26. XOPENEX [Concomitant]
     Active Substance: LEVALBUTEROL HYDROCHLORIDE

REACTIONS (1)
  - Ear infection [Unknown]
